FAERS Safety Report 15075395 (Version 1)
Quarter: 2018Q3

REPORT INFORMATION
  Report Type: Spontaneous
  Country: US (occurrence: US)
  Receive Date: 20180627
  Receipt Date: 20180627
  Transmission Date: 20181010
  Serious: No
  Sender: FDA-Public Use
  Company Number: US-SAOL THERAPEUTICS-2018SAO00318

PATIENT
  Sex: Male

DRUGS (2)
  1. BACLOFEN. [Suspect]
     Active Substance: BACLOFEN
     Dosage: 1000 ?G, \DAY
     Route: 037
  2. OTHER UNK INTRATHECAL MEDICATION [Suspect]
     Active Substance: UNSPECIFIED INGREDIENT
     Route: 037

REACTIONS (3)
  - Muscle spasticity [Unknown]
  - Device inversion [None]
  - Device dislocation [Unknown]
